FAERS Safety Report 4408535-2 (Version None)
Quarter: 2004Q3

REPORT INFORMATION
  Report Type: 
  Country: None (occurrence: None)
  Receive Date: 20040722
  Receipt Date: 20040707
  Transmission Date: 20050211
  Serious: Yes (Other)
  Sender: FDA-Public Use
  Company Number: P2004000004

PATIENT
  Age: 60 Year
  Sex: Male
  Weight: 77.1 kg

DRUGS (5)
  1. PLENAXIS [Suspect]
     Dosage: 100 MG, SINGLE, INTRAMUSCULAR
     Route: 030
     Dates: start: 20040603, end: 20040603
  2. PLENAXIS [Suspect]
     Indication: PROSTATE CANCER
     Dosage: 100 MG, SINGLE, INTRAMUSCULAR
     Route: 030
     Dates: start: 20040621, end: 20040621
  3. SELENIUM (SELENIUM) [Concomitant]
  4. CASODEX [Concomitant]
  5. VITAMIN B12 [Concomitant]

REACTIONS (3)
  - FLUSHING [None]
  - HYPOTENSION [None]
  - URTICARIA [None]
